FAERS Safety Report 9305504 (Version 2)
Quarter: 2013Q3

REPORT INFORMATION
  Report Type: Spontaneous
  Country: US (occurrence: US)
  Receive Date: 20130523
  Receipt Date: 20130809
  Transmission Date: 20140515
  Serious: Yes (Other)
  Sender: FDA-Public Use
  Company Number: US-SANOFI-AVENTIS-2013SA000796

PATIENT
  Age: 26 Year
  Sex: Female
  Weight: 120.2 kg

DRUGS (9)
  1. AUBAGIO [Suspect]
     Indication: PROGRESSIVE RELAPSING MULTIPLE SCLEROSIS
     Route: 048
     Dates: start: 201210
  2. AUBAGIO [Suspect]
     Indication: PROGRESSIVE RELAPSING MULTIPLE SCLEROSIS
     Route: 048
     Dates: start: 20121119, end: 20130520
  3. FTY 720 [Concomitant]
  4. EFFEXOR [Concomitant]
     Indication: DEPRESSION
     Dates: start: 20100101
  5. GABAPENTIN [Concomitant]
     Indication: NEURALGIA
     Dates: start: 20080914
  6. AMBIEN [Concomitant]
     Indication: SLEEP DISORDER
     Dates: start: 20080914
  7. BACLOFEN [Concomitant]
     Indication: MUSCLE SPASMS
     Route: 048
     Dates: start: 20080914
  8. VITAMIN D [Concomitant]
     Indication: HYPOVITAMINOSIS
     Dosage: DOSE:50000 UNIT(S)
     Dates: start: 20080914
  9. ALL OTHER THERAPEUTIC PRODUCTS [Concomitant]
     Route: 065
     Dates: start: 20130607

REACTIONS (14)
  - Cognitive disorder [Not Recovered/Not Resolved]
  - Multiple sclerosis relapse [Not Recovered/Not Resolved]
  - Neuropathy peripheral [Not Recovered/Not Resolved]
  - Muscle spasms [Not Recovered/Not Resolved]
  - Fatigue [Not Recovered/Not Resolved]
  - Musculoskeletal pain [Not Recovered/Not Resolved]
  - Limb discomfort [Not Recovered/Not Resolved]
  - Diarrhoea [Unknown]
  - Urinary incontinence [Not Recovered/Not Resolved]
  - Visual impairment [Not Recovered/Not Resolved]
  - Condition aggravated [Not Recovered/Not Resolved]
  - Hypertrichosis [Not Recovered/Not Resolved]
  - Skin discolouration [Not Recovered/Not Resolved]
  - Alopecia [Recovered/Resolved]
